FAERS Safety Report 7720785-6 (Version None)
Quarter: 2011Q3

REPORT INFORMATION
  Report Type: 
  Country: None (occurrence: None)
  Receive Date: 20110831
  Receipt Date: 20110824
  Transmission Date: 20111222
  Serious: Yes (Other)
  Sender: FDA-Public Use
  Company Number: DE-BAXTER-2011BH027680

PATIENT
  Age: 37 Year
  Sex: Female

DRUGS (3)
  1. MITOXANTRONE [Suspect]
     Indication: SECONDARY PROGRESSIVE MULTIPLE SCLEROSIS
     Route: 065
  2. ONDANSETRON, UNSPECIFIED [Suspect]
     Indication: ANTIEMETIC SUPPORTIVE CARE
     Route: 065
  3. MITOXANTRONE [Suspect]
     Indication: OFF LABEL USE
     Route: 065

REACTIONS (1)
  - MATERNAL EXPOSURE BEFORE PREGNANCY [None]
